FAERS Safety Report 7995860-1 (Version None)
Quarter: 2011Q4

REPORT INFORMATION
  Report Type: 
  Country: None (occurrence: None)
  Receive Date: 20111220
  Receipt Date: 20111212
  Transmission Date: 20120403
  Serious: Yes (Other)
  Sender: FDA-Public Use
  Company Number: NL-B.I. PHARMACEUTICALS,INC./RIDGEFIELD-2011-BP-28344YA

PATIENT
  Age: 71 Year
  Sex: Male

DRUGS (6)
  1. TAMSULOSIN HCL [Suspect]
     Indication: BENIGN PROSTATIC HYPERPLASIA
     Dosage: 0.4 MG
     Route: 065
  2. HYDROCHLOROTHIAZIDE [Concomitant]
  3. DUTASTERIDE (DUTASTERIDE) [Concomitant]
  4. ISOSORBIDE MONONITRATE [Concomitant]
  5. DIGOXIN [Suspect]
     Indication: ATRIAL FIBRILLATION
     Dosage: 0.25 MG
     Route: 065
  6. LISINOPRIL [Concomitant]

REACTIONS (1)
  - BLINDNESS UNILATERAL [None]
